FAERS Safety Report 7790541-1 (Version None)
Quarter: 2011Q3

REPORT INFORMATION
  Report Type: 
  Country: None (occurrence: None)
  Receive Date: 20110930
  Receipt Date: 20110927
  Transmission Date: 20111222
  Serious: Yes (Disabling, Other)
  Sender: FDA-Public Use
  Company Number: PHHY2011US31273

PATIENT
  Sex: Female
  Weight: 68.027 kg

DRUGS (8)
  1. BACLOFEN [Concomitant]
     Indication: MUSCLE SPASTICITY
     Dosage: 10 MG, Q4-6
  2. DICYCLOMINE HYDROCHLORIDE [Concomitant]
     Indication: IRRITABLE BOWEL SYNDROME
     Dosage: 10 MG, Q6 HR
     Route: 048
  3. GILENYA [Suspect]
     Dosage: 0.5 MG, DAILY
     Route: 048
     Dates: start: 20110516, end: 20110517
  4. LYRICA [Concomitant]
     Dosage: 50 MG, BID
  5. PROVIGIL [Concomitant]
     Dosage: UNK UKN, UNK
  6. GILENYA [Suspect]
     Indication: MULTIPLE SCLEROSIS
     Dosage: 0.5 MG, QD
     Route: 048
     Dates: start: 20110407, end: 20110413
  7. LYRICA [Concomitant]
     Indication: FIBROMYALGIA
     Dosage: 200 MG, BID
  8. ZOLPIDEM [Concomitant]
     Indication: SLEEP DISORDER
     Dosage: 10 MG, QHS
     Route: 048

REACTIONS (9)
  - PALPITATIONS [None]
  - NAUSEA [None]
  - DIZZINESS [None]
  - HEART RATE DECREASED [None]
  - FATIGUE [None]
  - HEADACHE [None]
  - DYSPNOEA [None]
  - LETHARGY [None]
  - FEELING ABNORMAL [None]
